FAERS Safety Report 5454867-9 (Version None)
Quarter: 2007Q3

REPORT INFORMATION
  Report Type: 
  Country: None (occurrence: None)
  Receive Date: 20070917
  Receipt Date: 20061002
  Transmission Date: 20080115
  Serious: Yes (Hospitalization)
  Sender: FDA-Public Use
  Company Number: US-ASTRAZENECA-2006UW19130

PATIENT
  Sex: Male

DRUGS (2)
  1. SEROQUEL [Suspect]
     Indication: SCHIZOPHRENIA
     Dosage: 200-300 MG PO DAILY
     Route: 048
  2. SEROQUEL [Suspect]
     Indication: PARANOIA
     Dosage: 200-300 MG PO DAILY
     Route: 048

REACTIONS (2)
  - HYPERGLYCAEMIA [None]
  - WEIGHT INCREASED [None]
